FAERS Safety Report 8940089 (Version 1)
Quarter: 2012Q4

REPORT INFORMATION
  Report Type: 
  Country: US (occurrence: US)
  Receive Date: 20121203
  Receipt Date: 20121203
  Transmission Date: 20130627
  Serious: No
  Sender: FDA-Public Use
  Company Number: US-009507513-1211USA011977

PATIENT
  Sex: Female

DRUGS (3)
  1. NASONEX [Suspect]
     Indication: NASAL CONGESTION
     Dosage: 2 sprays, bid
     Route: 055
     Dates: start: 201211
  2. COUMADIN [Concomitant]
  3. SOTALOL HYDROCHLORIDE [Concomitant]

REACTIONS (1)
  - Oral herpes [Recovering/Resolving]
